FAERS Safety Report 9638646 (Version 1)
Quarter: 2013Q4

REPORT INFORMATION
  Report Type: Spontaneous
  Country: US (occurrence: US)
  Receive Date: 20131022
  Receipt Date: 20131022
  Transmission Date: 20140711
  Serious: No
  Sender: FDA-Public Use
  Company Number: US-BRISTOL-MYERS SQUIBB COMPANY-19399773

PATIENT
  Age: 54 Year
  Sex: Female
  Weight: 131.06 kg

DRUGS (8)
  1. ELIQUIS [Suspect]
     Indication: ATRIAL FIBRILLATION
     Dosage: IN THE MORNING AND AT NIGHT,LAST ADM DATE:13SEP13
     Dates: start: 20130509
  2. TAPAZOLE [Concomitant]
     Indication: HYPERTHYROIDISM
  3. BENAZEPRIL HCL [Concomitant]
  4. HYDROCHLOROTHIAZIDE [Concomitant]
  5. AMLODIPINE [Concomitant]
  6. OXYCODONE [Concomitant]
  7. XANAX [Concomitant]
  8. VITAMINS [Concomitant]

REACTIONS (3)
  - Abdominal pain upper [Unknown]
  - Weight decreased [Unknown]
  - Malaise [Unknown]
